FAERS Safety Report 25937149 (Version 1)
Quarter: 2025Q4

REPORT INFORMATION
  Report Type: Report from Study
  Country: EU (occurrence: None)
  Receive Date: 20251017
  Receipt Date: 20251017
  Transmission Date: 20260117
  Serious: Yes (Hospitalization)
  Sender: UCB
  Company Number: EU-UCBSA-2025064481

PATIENT

DRUGS (4)
  1. CERTOLIZUMAB PEGOL [Suspect]
     Active Substance: CERTOLIZUMAB PEGOL
     Indication: Product used for unknown indication
     Dosage: 200 MILLIGRAM
  2. FILGOTINIB [Suspect]
     Active Substance: FILGOTINIB
     Indication: Product used for unknown indication
     Dosage: 200 MILLIGRAM
  3. TYENNE [Concomitant]
     Active Substance: TOCILIZUMAB-AAZG
     Indication: Product used for unknown indication
     Dosage: 162 MILLIGRAM
  4. TYENNE [Concomitant]
     Active Substance: TOCILIZUMAB-AAZG
     Dosage: 162 MILLIGRAM

REACTIONS (3)
  - Benign prostatic hyperplasia [Recovered/Resolved]
  - Haematuria [Not Recovered/Not Resolved]
  - Pyrexia [Recovered/Resolved]
